FAERS Safety Report 5382237-0 (Version None)
Quarter: 2007Q3

REPORT INFORMATION
  Report Type: 
  Country: None (occurrence: None)
  Receive Date: 20070709
  Receipt Date: 20070627
  Transmission Date: 20080115
  Serious: Yes (Disabling)
  Sender: FDA-Public Use
  Company Number: GB-PFIZER INC-2007054123

PATIENT
  Age: 86 Year
  Weight: 100 kg

DRUGS (7)
  1. DOXAZOSIN MESYLATE [Suspect]
     Indication: HYPERTENSION
     Route: 048
     Dates: start: 20000104, end: 20070101
  2. ALLOPURINOL [Concomitant]
  3. BUMETANIDE [Concomitant]
  4. FERROUS SULFATE TAB [Concomitant]
  5. OMEPRAZOLE [Concomitant]
  6. RAMIPRIL [Concomitant]
  7. SPIRONOLACTONE [Concomitant]

REACTIONS (2)
  - MYALGIA [None]
  - NECK PAIN [None]
